FAERS Safety Report 9171869 (Version 2)
Quarter: 2013Q1

REPORT INFORMATION
  Report Type: Spontaneous
  Country: IN (occurrence: IN)
  Receive Date: 20130319
  Receipt Date: 20130328
  Transmission Date: 20140127
  Serious: Yes (Hospitalization)
  Sender: FDA-Public Use
  Company Number: IN-PFIZER INC-2013084705

PATIENT
  Age: 35 Day
  Sex: Male

DRUGS (1)
  1. SILDENAFIL CITRATE [Suspect]
     Indication: PULMONARY HYPERTENSION
     Dosage: UNK
     Route: 049

REACTIONS (2)
  - Cardiac failure congestive [Unknown]
  - Off label use [Unknown]
